FAERS Safety Report 4800105-7 (Version None)
Quarter: 2005Q4

REPORT INFORMATION
  Report Type: 
  Country: None (occurrence: None)
  Receive Date: 20051017
  Receipt Date: 20050809
  Transmission Date: 20060501
  Serious: Yes (Death)
  Sender: FDA-Public Use
  Company Number: US-GLAXOSMITHKLINE-A0569562A

PATIENT
  Age: 22 Year
  Sex: Female
  Weight: 53.6 kg

DRUGS (1)
  1. PAROXETINE HCL [Suspect]
     Indication: ANXIETY DISORDER
     Dosage: 10MG PER DAY
     Route: 048
     Dates: start: 20030929

REACTIONS (1)
  - COMPLETED SUICIDE [None]
